FAERS Safety Report 12332914 (Version 1)
Quarter: 2016Q2

REPORT INFORMATION
  Report Type: Spontaneous
  Country: CA (occurrence: CA)
  Receive Date: 20160504
  Receipt Date: 20160504
  Transmission Date: 20160815
  Serious: Yes (Other)
  Sender: FDA-Public Use
  Company Number: CA-PFIZER INC-2016238039

PATIENT
  Age: 16 Year
  Sex: Female

DRUGS (1)
  1. GD-GABAPENTIN [Suspect]
     Active Substance: GABAPENTIN
     Dosage: 900 MG, UNK
     Dates: start: 201604

REACTIONS (7)
  - Feeling abnormal [Not Recovered/Not Resolved]
  - Abnormal behaviour [None]
  - Product use issue [Not Recovered/Not Resolved]
  - Duodenal ulcer [Not Recovered/Not Resolved]
  - Gait disturbance [Not Recovered/Not Resolved]
  - Pancreatic disorder [Not Recovered/Not Resolved]
  - Pain [Not Recovered/Not Resolved]

NARRATIVE: CASE EVENT DATE: 201604
